FAERS Safety Report 15468712 (Version 8)
Quarter: 2018Q4

REPORT INFORMATION
  Report Type: Report from Study
  Country: US (occurrence: US)
  Receive Date: 20181005
  Receipt Date: 20181217
  Transmission Date: 20190204
  Serious: Yes (Other)
  Sender: FDA-Public Use
  Company Number: US-TEVA-2018-US-960698

PATIENT
  Age: 60 Year
  Sex: Female

DRUGS (20)
  1. DICLOFENAC [Concomitant]
     Active Substance: DICLOFENAC
     Indication: ARTHRALGIA
     Dosage: 4 GRAM DAILY; APPLY 4 GRAMS TO KNEES THREE TIMES DAILY IN THE MORNING, AT 2:00PM AND AT 5:00PM FOR P
     Route: 065
     Dates: start: 20180911
  2. CERTA-VITE TAB [Concomitant]
     Dosage: TAKE 1 TABLET BY MOUTH DAILY IN THE MORNING
     Route: 048
     Dates: start: 20180424
  3. BACTINE PAIN RELIEVING CLEANING [Concomitant]
     Indication: WOUND
     Dosage: DOSE STRENGTH: 2.5 PERCENTAGE - 0.13 PERCENTAGE EVERY 8 HOURS AS NEEDED
     Route: 061
     Dates: start: 20180404
  4. LEVOTHYROXINE. [Concomitant]
     Active Substance: LEVOTHYROXINE
     Indication: HYPOTHYROIDISM
     Dosage: TAKE  1 TABLET BEFORE BREAK FAST
     Route: 048
     Dates: start: 20180402
  5. IBUPROFEN. [Concomitant]
     Active Substance: IBUPROFEN
     Indication: PYREXIA
  6. ACETAMINOPHEN. [Concomitant]
     Active Substance: ACETAMINOPHEN
     Indication: OSTEOARTHRITIS
     Dosage: 650 MILLIGRAM DAILY; TAKE 2 TABLETS (650 MG)BY MOUTH THREE TIMES DAILY
     Route: 048
     Dates: start: 20180911
  7. MAGNESIUM CITRATE. [Concomitant]
     Active Substance: MAGNESIUM CITRATE
     Indication: CONSTIPATION
     Dosage: 296 ML DAILY; DRINK 1 BOTTLE (296ML) BY MOUTH AS NEEDED, NOTIFY 50 MG DOSE TO = 250 MG
     Route: 048
     Dates: start: 20180911
  8. CALCIUM CARBONATE. [Concomitant]
     Active Substance: CALCIUM CARBONATE
     Indication: BONE DISORDER
     Dosage: TAKE 1 TABLE SPOON BY ORAL RUTE
     Route: 048
     Dates: start: 20140114
  9. CLOZAPINE TEVA [Suspect]
     Active Substance: CLOZAPINE
     Dosage: 5 MILLIGRAM DAILY; MORNING AND  EVENING (WITH 0.5MG = 5MG DAILY
     Route: 048
     Dates: start: 20181016
  10. AMMONIUM LACTATE. [Concomitant]
     Active Substance: AMMONIUM LACTATE
     Indication: DRY SKIN
     Dosage: APPLY TOPICALLY TO SKIN NEEDED FOR DRY SKIN (12 HOURS APART)
     Route: 061
     Dates: start: 20180404
  11. CLOZAPINE TEVA [Suspect]
     Active Substance: CLOZAPINE
     Dosage: 450 MILLIGRAM DAILY; TAPERED FROM 600MG DAILY TO 450MG
     Route: 048
  12. OLANZAPINE. [Concomitant]
     Active Substance: OLANZAPINE
     Indication: AGITATION
     Dosage: TAKE 1 TABLET BY ORAL ROUTE EVERY SIX HOURS PLACE ON TOP OF THE TONGUE WHERE IT WILL DISSOLVE, THEN
     Route: 048
     Dates: start: 20180417
  13. CLOZAPINE TEVA [Suspect]
     Active Substance: CLOZAPINE
     Indication: SCHIZOPHRENIA
     Route: 048
  14. CLOZAPINE TEVA [Suspect]
     Active Substance: CLOZAPINE
     Dosage: 5 MILLIGRAM DAILY; MORNING AND EVENING (WITH 2 MG =  5MGDAILY
     Route: 048
     Dates: start: 20181016
  15. CLOZAPINE TEVA [Suspect]
     Active Substance: CLOZAPINE
     Dosage: TAKE 1.5 TABLETS (150 MG) BY MOUTH DALLY AT 0800 AND 3 TABLETS (300 MG) BY  MOUTH DALLY AT 1700
     Route: 065
     Dates: start: 20181016
  16. CHOLECALCIFEROL [Concomitant]
     Active Substance: CHOLECALCIFEROL
     Indication: BONE DISORDER
     Dosage: DOSAGE STRENGTH: 2,000 UNIT TAKE 1 TABLET BEFORE BREAKFAST
     Route: 048
     Dates: start: 20140709
  17. IBUPROFEN. [Concomitant]
     Active Substance: IBUPROFEN
     Indication: PAIN
     Route: 048
     Dates: start: 20180419
  18. CLOZAPINE TEVA [Suspect]
     Active Substance: CLOZAPINE
     Indication: CATATONIA
     Dosage: 600 MILLIGRAM DAILY; TAPERED FROM 600MG DAILY TO 450MG
     Route: 048
  19. KLONOPIN [Concomitant]
     Active Substance: CLONAZEPAM
     Indication: AGITATION
     Dosage: TAKE 1 TABLET BY MOUTH DAILY AS NEEDED 1 HR BEFORE MEDICAL APPOINTMENT THAT REQUIRES PROCEDURE
     Route: 048
     Dates: start: 20180416
  20. TRAMADOL. [Concomitant]
     Active Substance: TRAMADOL
     Indication: ARTHRALGIA
     Dosage: AS REQUIRED
     Route: 048
     Dates: start: 20180404

REACTIONS (3)
  - Agranulocytosis [Unknown]
  - Neutropenia [Recovering/Resolving]
  - Granulocytopenia [Unknown]

NARRATIVE: CASE EVENT DATE: 20181016
